FAERS Safety Report 7637679-7 (Version None)
Quarter: 2011Q3

REPORT INFORMATION
  Report Type: 
  Country: None (occurrence: None)
  Receive Date: 20110726
  Receipt Date: 20110525
  Transmission Date: 20111222
  Serious: No
  Sender: FDA-Public Use
  Company Number: US-AMGEN-USASP2011027371

PATIENT
  Age: 80 Year
  Sex: Male
  Weight: 64.399 kg

DRUGS (8)
  1. ATENOLOL [Concomitant]
     Dosage: 50 MG, QD
     Route: 048
  2. FERROUS SULFATE TAB [Concomitant]
     Dosage: UNK UNK, QD
     Route: 048
  3. METHOTREXATE [Concomitant]
     Dosage: 2.5 MG, TID
     Route: 048
  4. ZOCOR [Concomitant]
     Dosage: 40 MG, QHS
     Route: 048
  5. PREDNISONE [Concomitant]
     Dosage: 5 MG, QD
     Route: 048
  6. PROCRIT [Suspect]
     Indication: ANAEMIA
     Dosage: UNK IU, UNK
  7. ASPIRIN [Concomitant]
     Dosage: 81 MG, QD
     Route: 048
  8. PLAVIX [Concomitant]
     Dosage: 75 MG, QD
     Route: 048

REACTIONS (1)
  - ADVERSE EVENT [None]
